FAERS Safety Report 7020371-X (Version None)
Quarter: 2010Q3

REPORT INFORMATION
  Report Type: 
  Country: None (occurrence: None)
  Receive Date: 20100927
  Receipt Date: 20100920
  Transmission Date: 20110219
  Serious: Yes (Death, Life-Threatening, Hospitalization, Other)
  Sender: FDA-Public Use
  Company Number: 2010SP043089

PATIENT
  Age: 72 Year
  Sex: Male
  Weight: 83.0083 kg

DRUGS (19)
  1. TEMOZOLOMIDE [Suspect]
     Indication: GLIOBLASTOMA MULTIFORME
     Dosage: PO
     Route: 048
     Dates: start: 20100222
  2. ABT-888 [Suspect]
     Indication: GLIOBLASTOMA MULTIFORME
     Dosage: 20 MG;QD;PO
     Route: 048
     Dates: start: 20100222
  3. DEXAMETHASONE [Concomitant]
  4. MULTI-VITAMIN [Concomitant]
  5. ZYFLAMEND [Concomitant]
  6. VACCINIUM MACROCARPON [Concomitant]
  7. ASCORBIC ACID [Concomitant]
  8. COLECALCIFEROL [Concomitant]
  9. COENZYME Q10 [Concomitant]
  10. CHONDROITIN SODIUM SULFATE W/GLUCOSAMINE HCL [Concomitant]
  11. PHYTONADIONE [Concomitant]
  12. ATORVASTATIN [Concomitant]
  13. ATENOLOL [Concomitant]
  14. NIACIN [Concomitant]
  15. CYANOCOBALAMIN [Concomitant]
  16. LEVETIRACETAM [Concomitant]
  17. METHYLPHENIDATE HCL [Concomitant]
  18. CITALOPRAM HYDROBROMIDE [Concomitant]
  19. FLUCONAZOLE [Concomitant]

REACTIONS (18)
  - ABDOMINAL PAIN [None]
  - ANAEMIA [None]
  - ASTHENIA [None]
  - BLOOD LACTIC ACID INCREASED [None]
  - DECREASED APPETITE [None]
  - DEHYDRATION [None]
  - FATIGUE [None]
  - HAEMATOMA [None]
  - HYPOTENSION [None]
  - MENTAL STATUS CHANGES [None]
  - OLIGURIA [None]
  - PULMONARY EMBOLISM [None]
  - SEPTIC SHOCK [None]
  - STAPHYLOCOCCAL INFECTION [None]
  - TACHYCARDIA [None]
  - THROMBOSIS [None]
  - TROPONIN I INCREASED [None]
  - VENOUS OCCLUSION [None]
